FAERS Safety Report 5086821-3 (Version None)
Quarter: 2006Q3

REPORT INFORMATION
  Report Type: 
  Country: None (occurrence: None)
  Receive Date: 20060823
  Receipt Date: 20060516
  Transmission Date: 20061208
  Serious: Yes (Hospitalization, Other)
  Sender: FDA-Public Use
  Company Number: US-ABBOTT-06P-163-0333739-00

PATIENT
  Sex: Female
  Weight: 83.99 kg

DRUGS (19)
  1. HUMIRA [Suspect]
     Indication: RHEUMATOID ARTHRITIS
     Route: 058
     Dates: start: 20050115, end: 20050602
  2. HUMIRA [Suspect]
     Route: 058
     Dates: start: 20050701, end: 20060101
  3. HUMIRA [Suspect]
     Route: 058
     Dates: start: 20060301, end: 20060516
  4. HUMIRA [Suspect]
     Route: 058
     Dates: end: 20060726
  5. ASASANTIN [Concomitant]
     Indication: ANTICOAGULANT THERAPY
  6. DIOVAN [Concomitant]
     Indication: HYPERTENSION
  7. ATORVASTATIN CALCIUM [Concomitant]
     Indication: BLOOD CHOLESTEROL INCREASED
  8. RABEPRAZOLE SODIUM [Concomitant]
     Indication: GASTROOESOPHAGEAL REFLUX DISEASE
  9. ALPRAZOLAM [Concomitant]
     Indication: ANXIETY
  10. METFORMIN [Concomitant]
     Indication: DIABETES MELLITUS
  11. POTASSIUM CHLORIDE CR [Concomitant]
     Indication: ELECTROLYTE SUBSTITUTION THERAPY
  12. METOPROLOL SUCCINATE [Concomitant]
     Indication: HYPERTENSION
  13. FUROSEMIDE [Concomitant]
     Indication: FLUID RETENTION
  14. FUROSEMIDE [Concomitant]
     Indication: HYPERTENSION
  15. CYMBALTA [Concomitant]
     Indication: NEUROPATHY PERIPHERAL
  16. FOLIC ACID [Concomitant]
     Indication: DRUG USE FOR UNKNOWN INDICATION
  17. OTC FIBER TABS [Concomitant]
     Indication: DRUG USE FOR UNKNOWN INDICATION
  18. OTC TIME RELEASE IRON [Concomitant]
     Indication: DRUG USE FOR UNKNOWN INDICATION
  19. METHOTREXATE [Concomitant]
     Indication: DRUG USE FOR UNKNOWN INDICATION

REACTIONS (10)
  - ABDOMINAL PAIN LOWER [None]
  - ANAEMIA [None]
  - ARTHRALGIA [None]
  - BACTERIAL INFECTION [None]
  - BLOOD PRESSURE DECREASED [None]
  - DIARRHOEA [None]
  - FATIGUE [None]
  - JOINT SWELLING [None]
  - RHEUMATOID ARTHRITIS [None]
  - URINARY TRACT INFECTION [None]
